FAERS Safety Report 9320427 (Version 3)
Quarter: 2014Q2

REPORT INFORMATION
  Report Type: Spontaneous
  Country: US (occurrence: US)
  Receive Date: 20130530
  Receipt Date: 20140404
  Transmission Date: 20141212
  Serious: Yes (Hospitalization)
  Sender: FDA-Public Use
  Company Number: US-B.I. PHARMACEUTICALS,INC./RIDGEFIELD-2013-BI-14685BP

PATIENT
  Age: 103 Year
  Sex: Female
  Weight: 72.57 kg

DRUGS (3)
  1. PRADAXA [Suspect]
     Indication: ATRIAL FIBRILLATION
     Route: 048
     Dates: start: 201104
  2. SYNTHROID [Concomitant]
     Route: 065
  3. MULTI-VITAMIN [Concomitant]
     Route: 065

REACTIONS (2)
  - Gastrointestinal haemorrhage [Unknown]
  - Diverticulum intestinal haemorrhagic [Unknown]
